FAERS Safety Report 18288294 (Version 2)
Quarter: 2020Q4

REPORT INFORMATION
  Report Type: Other
  Country: CA (occurrence: CA)
  Receive Date: 20200921
  Receipt Date: 20201023
  Transmission Date: 20210113
  Serious: Yes (Hospitalization, Other)
  Sender: FDA-Public Use
  Company Number: CA-APOTEX-2020AP017783

PATIENT
  Sex: Female

DRUGS (4)
  1. ACETAMINOPHEN. [Suspect]
     Active Substance: ACETAMINOPHEN
     Indication: PRODUCT USED FOR UNKNOWN INDICATION
     Dosage: 8 GRAM, QD
     Route: 048
  2. HUMIRA [Suspect]
     Active Substance: ADALIMUMAB
     Indication: ANKYLOSING SPONDYLITIS
     Dosage: 40 MILLIGRAM, CYCLICAL
     Route: 058
  3. METHOTREXATE. [Suspect]
     Active Substance: METHOTREXATE
     Indication: PRODUCT USED FOR UNKNOWN INDICATION
     Dosage: UNK
     Route: 065
  4. ISONIAZID. [Suspect]
     Active Substance: ISONIAZID
     Indication: PRODUCT USED FOR UNKNOWN INDICATION
     Dosage: 300 MILLIGRAM, QD
     Route: 065

REACTIONS (3)
  - Liver disorder [Recovered/Resolved]
  - Toxicity to various agents [Recovered/Resolved]
  - Drug level increased [Recovered/Resolved]
